FAERS Safety Report 26045584 (Version 1)
Quarter: 2025Q4

REPORT INFORMATION
  Report Type: Report from Study
  Country: CN (occurrence: CN)
  Receive Date: 20251114
  Receipt Date: 20251114
  Transmission Date: 20260117
  Serious: Yes (Other)
  Sender: ROCHE
  Company Number: CN-ROCHE-10000426225

PATIENT
  Age: 48 Year
  Sex: Male

DRUGS (52)
  1. RITUXIMAB [Suspect]
     Active Substance: RITUXIMAB
     Indication: Diffuse large B-cell lymphoma
     Route: 042
     Dates: start: 20231118, end: 20231118
  2. RITUXIMAB [Suspect]
     Active Substance: RITUXIMAB
     Route: 042
     Dates: start: 20231119, end: 20231119
  3. RITUXIMAB [Suspect]
     Active Substance: RITUXIMAB
     Route: 042
     Dates: start: 20231205, end: 20231205
  4. POLATUZUMAB VEDOTIN [Suspect]
     Active Substance: POLATUZUMAB VEDOTIN
     Indication: Diffuse large B-cell lymphoma
     Route: 042
     Dates: start: 20231115, end: 20231115
  5. POLATUZUMAB VEDOTIN [Suspect]
     Active Substance: POLATUZUMAB VEDOTIN
     Route: 042
     Dates: start: 20231116, end: 20231116
  6. POLATUZUMAB VEDOTIN [Suspect]
     Active Substance: POLATUZUMAB VEDOTIN
     Route: 042
     Dates: start: 20231204, end: 20231204
  7. CYCLOPHOSPHAMIDE [Suspect]
     Active Substance: CYCLOPHOSPHAMIDE
     Indication: Diffuse large B-cell lymphoma
     Route: 042
     Dates: start: 20231112, end: 20231113
  8. CYCLOPHOSPHAMIDE [Suspect]
     Active Substance: CYCLOPHOSPHAMIDE
     Route: 042
     Dates: start: 20231114, end: 20231114
  9. CYCLOPHOSPHAMIDE [Suspect]
     Active Substance: CYCLOPHOSPHAMIDE
     Route: 042
     Dates: start: 20231204, end: 20231204
  10. PREDNISONE [Suspect]
     Active Substance: PREDNISONE
     Indication: Diffuse large B-cell lymphoma
     Route: 048
     Dates: start: 20231205, end: 20231209
  11. DOXORUBICIN HYDROCHLORIDE [Suspect]
     Active Substance: DOXORUBICIN HYDROCHLORIDE
     Indication: Diffuse large B-cell lymphoma
     Route: 042
     Dates: start: 20231117, end: 20231117
  12. DOXORUBICIN HYDROCHLORIDE [Suspect]
     Active Substance: DOXORUBICIN HYDROCHLORIDE
     Route: 042
     Dates: start: 20231204, end: 20231204
  13. RITUXIMAB [Suspect]
     Active Substance: RITUXIMAB
     Indication: Diffuse large B-cell lymphoma
     Route: 042
     Dates: start: 20231205, end: 20231205
  14. TORSEMIDE [Concomitant]
     Active Substance: TORSEMIDE
     Dates: start: 20231111, end: 20231111
  15. TORSEMIDE [Concomitant]
     Active Substance: TORSEMIDE
     Dates: start: 20231113, end: 20231113
  16. TORSEMIDE [Concomitant]
     Active Substance: TORSEMIDE
     Dates: start: 20231114, end: 20231114
  17. Micafungin sodium for injection [Concomitant]
     Route: 042
     Dates: start: 20231112, end: 20231120
  18. Micafungin sodium for injection [Concomitant]
     Dates: start: 20231111, end: 20231111
  19. tathion injection [Concomitant]
     Route: 042
     Dates: start: 20231111, end: 20231120
  20. CYSTEINE\GLYCINE\GLYCYRRHIZIN [Concomitant]
     Active Substance: CYSTEINE\GLYCINE\GLYCYRRHIZIN
     Route: 042
     Dates: start: 20231111, end: 20231117
  21. Sodium diisopropylamine dichloroacetate for inj [Concomitant]
     Route: 042
     Dates: start: 20231111, end: 20231112
  22. Insulin Human Inj [Concomitant]
     Route: 042
     Dates: start: 20231112, end: 20231114
  23. Insulin Human Inj [Concomitant]
     Dates: start: 20231111, end: 20231111
  24. SODIUM BICARBONATE [Concomitant]
     Active Substance: SODIUM BICARBONATE
     Route: 042
     Dates: start: 20231112, end: 20231121
  25. SODIUM BICARBONATE [Concomitant]
     Active Substance: SODIUM BICARBONATE
     Dates: start: 20231111, end: 20231111
  26. ESOMEPRAZOLE SODIUM [Concomitant]
     Active Substance: ESOMEPRAZOLE SODIUM
     Route: 042
     Dates: start: 20231111, end: 20231120
  27. ESOMEPRAZOLE SODIUM [Concomitant]
     Active Substance: ESOMEPRAZOLE SODIUM
     Dates: start: 20231114, end: 20231114
  28. Piperacillin sodium Tazobactam sodium for injection [Concomitant]
     Route: 042
     Dates: start: 20231112, end: 20231120
  29. Piperacillin sodium Tazobactam sodium for injection [Concomitant]
     Dates: start: 20231114, end: 20231114
  30. Piperacillin sodium Tazobactam sodium for injection [Concomitant]
     Dates: start: 20231111, end: 20231111
  31. LECITHIN [Concomitant]
     Active Substance: LECITHIN
     Route: 042
     Dates: start: 20231112, end: 20231117
  32. METOCLOPRAMIDE [Concomitant]
     Active Substance: METOCLOPRAMIDE
     Route: 048
     Dates: start: 20231113, end: 20231113
  33. ACETYLCYSTEINE [Concomitant]
     Active Substance: ACETYLCYSTEINE
     Route: 042
     Dates: start: 20231113, end: 20231120
  34. OCTREOTIDE ACETATE [Concomitant]
     Active Substance: OCTREOTIDE ACETATE
     Route: 042
     Dates: start: 20231113, end: 20231113
  35. OCTREOTIDE ACETATE [Concomitant]
     Active Substance: OCTREOTIDE ACETATE
     Dates: start: 20231112, end: 20231112
  36. hydrotalcite chewable tablets [Concomitant]
     Route: 048
     Dates: start: 20231113, end: 20231121
  37. ENTECAVIR [Concomitant]
     Active Substance: ENTECAVIR
     Route: 048
     Dates: start: 20231113, end: 20231129
  38. ALBUMIN HUMAN [Concomitant]
     Active Substance: ALBUMIN HUMAN
     Dates: start: 20231111, end: 20231111
  39. ALBUMIN HUMAN [Concomitant]
     Active Substance: ALBUMIN HUMAN
     Dates: start: 20231112, end: 20231118
  40. DEXAMETHASONE SODIUM PHOSPHATE [Concomitant]
     Active Substance: DEXAMETHASONE SODIUM PHOSPHATE
     Dates: start: 20231111, end: 20231111
  41. DEXAMETHASONE SODIUM PHOSPHATE [Concomitant]
     Active Substance: DEXAMETHASONE SODIUM PHOSPHATE
     Dates: start: 20231112, end: 20231112
  42. DEXAMETHASONE SODIUM PHOSPHATE [Concomitant]
     Active Substance: DEXAMETHASONE SODIUM PHOSPHATE
     Dates: start: 20231113, end: 20231114
  43. AZITHROMYCIN [Concomitant]
     Active Substance: AZITHROMYCIN
     Route: 048
     Dates: start: 20231113, end: 20231113
  44. LIDOCAINE HYDROCHLORIDE [Concomitant]
     Active Substance: LIDOCAINE HYDROCHLORIDE
     Route: 050
     Dates: start: 20231113, end: 20231113
  45. POTASSIUM CHLORIDE [Concomitant]
     Active Substance: POTASSIUM CHLORIDE
     Route: 050
     Dates: start: 20231113, end: 20231113
  46. POTASSIUM CHLORIDE [Concomitant]
     Active Substance: POTASSIUM CHLORIDE
     Route: 050
     Dates: start: 20231114, end: 20231115
  47. Inject human immunoglobulin [Concomitant]
     Dates: start: 20231113, end: 20231114
  48. CALCIUM GLUCONATE [Concomitant]
     Active Substance: CALCIUM GLUCONATE
     Dates: start: 20231114, end: 20231115
  49. GLYCOSAMINOGLYCANS [Concomitant]
     Active Substance: GLYCOSAMINOGLYCANS
     Dates: start: 20231114, end: 20231114
  50. FEBUXOSTAT [Concomitant]
     Active Substance: FEBUXOSTAT
     Route: 048
     Dates: start: 20231115, end: 20231115
  51. POVIDONE-IODINE [Concomitant]
     Active Substance: POVIDONE-IODINE
     Route: 050
     Dates: start: 20231112, end: 20231121
  52. compound chlorhexidine gargle [Concomitant]
     Route: 050
     Dates: start: 20231112, end: 20231121

REACTIONS (2)
  - Hypokalaemia [Recovered/Resolved]
  - Hypophosphataemia [Recovered/Resolved]
